FAERS Safety Report 5601308-4 (Version None)
Quarter: 2008Q1

REPORT INFORMATION
  Report Type: 
  Country: None (occurrence: None)
  Receive Date: 20080124
  Receipt Date: 20080114
  Transmission Date: 20080703
  Serious: Yes (Hospitalization)
  Sender: FDA-Public Use
  Company Number: B0504256A

PATIENT
  Age: 33 Year
  Sex: Male

DRUGS (13)
  1. AUGMENTIN '125' [Suspect]
     Indication: DRUG USE FOR UNKNOWN INDICATION
     Dosage: 2G PER DAY
     Route: 048
     Dates: start: 20070731, end: 20070806
  2. SKENAN [Suspect]
     Route: 065
     Dates: start: 20070731, end: 20070828
  3. GENTAMYCIN INJECTION [Suspect]
     Indication: DRUG USE FOR UNKNOWN INDICATION
     Route: 042
     Dates: start: 20070731, end: 20070806
  4. CONTRAMAL [Suspect]
     Route: 048
     Dates: start: 20070731, end: 20070813
  5. FONZYLANE [Suspect]
     Indication: DRUG USE FOR UNKNOWN INDICATION
     Route: 048
     Dates: start: 20070731, end: 20070828
  6. MIDAZOLAM HCL [Concomitant]
     Route: 065
     Dates: end: 20070828
  7. INIPOMP [Concomitant]
     Route: 065
     Dates: end: 20070813
  8. PARACETAMOL [Concomitant]
     Route: 065
     Dates: end: 20070813
  9. ZALDIAR [Concomitant]
     Route: 065
     Dates: end: 20070813
  10. NEURONTIN [Concomitant]
     Route: 065
     Dates: end: 20070828
  11. PROFENID [Concomitant]
     Route: 065
     Dates: end: 20070813
  12. EUPRESSYL [Concomitant]
     Route: 065
     Dates: end: 20070828
  13. TRAMADOL HYDROCHLORIDE AND ACETAMINOPHEN [Concomitant]
     Route: 065
     Dates: end: 20070813

REACTIONS (5)
  - ALANINE AMINOTRANSFERASE INCREASED [None]
  - ASPARTATE AMINOTRANSFERASE INCREASED [None]
  - BLOOD ALKALINE PHOSPHATASE INCREASED [None]
  - CHOLELITHIASIS [None]
  - CHOLESTASIS [None]
